FAERS Safety Report 6564575-9 (Version None)
Quarter: 2010Q1

REPORT INFORMATION
  Report Type: 
  Country: None (occurrence: None)
  Receive Date: 20100201
  Receipt Date: 20100120
  Transmission Date: 20100710
  Serious: Yes (Other)
  Sender: FDA-Public Use
  Company Number: PHHY2009FR59776

PATIENT
  Sex: Female
  Weight: 55 kg

DRUGS (5)
  1. ACLASTA [Suspect]
     Indication: OSTEOPOROSIS
     Dosage: 1 DF, ONCE/SINGLE
     Route: 042
     Dates: start: 20091210
  2. SYMBICORT [Concomitant]
     Indication: ASTHMA
  3. FORADIL [Concomitant]
     Indication: ASTHMA
  4. SINGULAIR [Concomitant]
     Indication: ASTHMA
  5. NASONEX [Concomitant]
     Indication: ASTHMA

REACTIONS (8)
  - BODY TEMPERATURE INCREASED [None]
  - CHILLS [None]
  - FEELING ABNORMAL [None]
  - HEADACHE [None]
  - HYPERTENSION [None]
  - INFLUENZA LIKE ILLNESS [None]
  - MIGRAINE [None]
  - MYALGIA [None]
